FAERS Safety Report 24708179 (Version 4)
Quarter: 2025Q1

REPORT INFORMATION
  Report Type: Report from Study
  Country: IN (occurrence: IN)
  Receive Date: 20241207
  Receipt Date: 20250205
  Transmission Date: 20250408
  Serious: No
  Sender: NOVARTIS
  Company Number: IN-002147023-NVSC2023IN264963

PATIENT
  Sex: Female

DRUGS (8)
  1. RIBOCICLIB [Suspect]
     Active Substance: RIBOCICLIB
     Indication: Breast cancer metastatic
     Dosage: 600 MG, QD (3 WEEKS AND 1 WEEK OF 1 MONTH)
     Route: 048
     Dates: start: 20201013
  2. RIBOCICLIB [Suspect]
     Active Substance: RIBOCICLIB
     Indication: Hormone receptor positive HER2 negative breast cancer
     Dosage: 600 MG, QD
     Route: 048
     Dates: start: 20201020
  3. RIBOCICLIB [Suspect]
     Active Substance: RIBOCICLIB
     Dosage: 600 MG, QD
     Route: 048
     Dates: start: 20201030
  4. ANASTROZOLE [Concomitant]
     Active Substance: ANASTROZOLE
     Indication: Product used for unknown indication
     Route: 065
     Dates: start: 201605
  5. Letor [Concomitant]
     Indication: Product used for unknown indication
     Dosage: 2.5 MG, QD
     Route: 065
  6. FULVIGLEN [Concomitant]
     Indication: Product used for unknown indication
     Route: 065
     Dates: start: 20200929
  7. Strantas [Concomitant]
     Indication: Product used for unknown indication
     Route: 030
  8. Zoledac [Concomitant]
     Indication: Product used for unknown indication
     Route: 042

REACTIONS (3)
  - Lung disorder [Unknown]
  - Adrenal disorder [Unknown]
  - Bone lesion [Unknown]
